FAERS Safety Report 6804379-2 (Version None)
Quarter: 2010Q2

REPORT INFORMATION
  Report Type: 
  Country: None (occurrence: None)
  Receive Date: 20100628
  Receipt Date: 20070508
  Transmission Date: 20101027
  Serious: No
  Sender: FDA-Public Use
  Company Number: US-PFIZER INC-2007019695

PATIENT

DRUGS (1)
  1. ZIPRASIDONE HCL [Suspect]
     Indication: AGITATION
     Route: 048
     Dates: start: 20070309

REACTIONS (2)
  - DEPRESSION [None]
  - DYSTONIA [None]
